FAERS Safety Report 8834372 (Version 5)
Quarter: 2013Q2

REPORT INFORMATION
  Report Type: Spontaneous
  Country: US (occurrence: US)
  Receive Date: 20121010
  Receipt Date: 20130605
  Transmission Date: 20140414
  Serious: Yes (Hospitalization, Disabling, Other)
  Sender: FDA-Public Use
  Company Number: US-009507513-1210USA003946

PATIENT
  Sex: Female
  Weight: 89.8 kg

DRUGS (5)
  1. FOSAMAX [Suspect]
     Indication: OSTEOPENIA
     Dosage: 10 MG, QD
     Route: 048
     Dates: start: 200002
  2. FOSAMAX [Suspect]
     Indication: OSTEOPENIA
     Dosage: 70 MG, QW
     Route: 048
     Dates: start: 200404
  3. ALENDRONATE SODIUM [Suspect]
     Indication: OSTEOPENIA
     Dosage: 70 MG, UNK
     Route: 048
     Dates: start: 201001, end: 201010
  4. ACTONEL [Suspect]
     Indication: OSTEOPENIA
     Dosage: 35 MG, UNK
     Route: 048
     Dates: start: 200605, end: 200704
  5. BONIVA [Suspect]
     Indication: OSTEOPENIA
     Dosage: 150 MG, UNK
     Dates: start: 200705, end: 200912

REACTIONS (33)
  - Knee arthroplasty [Unknown]
  - Cerebrovascular accident [Unknown]
  - Cerebrovascular accident [Unknown]
  - Cardiac pacemaker insertion [Unknown]
  - Urethral cancer [Unknown]
  - Neoplasm malignant [Not Recovered/Not Resolved]
  - Transfusion [Unknown]
  - Osteonecrosis of jaw [Not Recovered/Not Resolved]
  - Depression [Not Recovered/Not Resolved]
  - Anxiety [Not Recovered/Not Resolved]
  - Foot fracture [Unknown]
  - Hypertension [Not Recovered/Not Resolved]
  - Fall [Unknown]
  - Face injury [Unknown]
  - Atrial fibrillation [Unknown]
  - Cardiac valve disease [Unknown]
  - Exostosis of jaw [Not Recovered/Not Resolved]
  - Arthritis [Not Recovered/Not Resolved]
  - Osteosclerosis [Unknown]
  - Exostosis [Not Recovered/Not Resolved]
  - Cholecystectomy [Unknown]
  - Hypertriglyceridaemia [Unknown]
  - Hysterectomy [Unknown]
  - Oedema [Unknown]
  - Type V hyperlipidaemia [Unknown]
  - Skin lesion [Not Recovered/Not Resolved]
  - Neuropathy peripheral [Unknown]
  - Upper respiratory tract infection [Unknown]
  - Parvovirus infection [Unknown]
  - Pneumonia [Unknown]
  - Fibromyalgia [Unknown]
  - Hyperlipidaemia [Not Recovered/Not Resolved]
  - Blood cholesterol increased [Not Recovered/Not Resolved]
